FAERS Safety Report 20118845 (Version 1)
Quarter: 2021Q4

REPORT INFORMATION
  Report Type: Spontaneous
  Country: US (occurrence: US)
  Receive Date: 20211126
  Receipt Date: 20211126
  Transmission Date: 20220303
  Serious: Yes (Life-Threatening, Hospitalization)
  Sender: FDA-Public Use
  Company Number: US-AVET LIFESCIENCES LTD-2021-AVET-000061

PATIENT
  Age: 79 Year
  Sex: Female

DRUGS (4)
  1. NIMODIPINE [Suspect]
     Active Substance: NIMODIPINE
     Indication: Blood pressure management
     Dosage: 60 MILLIGRAM VIA OROGASTRIC TUBE
  2. METOPROLOL [Concomitant]
     Active Substance: METOPROLOL
     Indication: Hypertension
     Dosage: 12.5 MILLIGRAM, QD
  3. NICARDIPINE [Concomitant]
     Active Substance: NICARDIPINE
     Indication: Blood pressure management
     Dosage: 5 MILLIGRAM PER HOUR
  4. PROPOFOL [Concomitant]
     Active Substance: PROPOFOL
     Indication: Sedation
     Dosage: 25 MICROGRAM PER KILOGRAM PER MINUTE

REACTIONS (1)
  - Vasoplegia syndrome [Recovering/Resolving]
